FAERS Safety Report 6595588-9 (Version None)
Quarter: 2010Q1

REPORT INFORMATION
  Report Type: 
  Country: None (occurrence: None)
  Receive Date: 20100223
  Receipt Date: 20100216
  Transmission Date: 20100710
  Serious: Yes (Hospitalization)
  Sender: FDA-Public Use
  Company Number: CL-BRISTOL-MYERS SQUIBB COMPANY-14911077

PATIENT
  Age: 50 Year
  Sex: Male

DRUGS (3)
  1. REYATAZ [Suspect]
     Indication: HIV INFECTION CDC CATEGORY B2
     Dates: start: 20091125
  2. LAMIVUDINE + ZIDOVUDINE [Concomitant]
     Indication: HIV INFECTION CDC CATEGORY B2
     Dates: start: 20091125
  3. RITONAVIR [Concomitant]
     Indication: HIV INFECTION CDC CATEGORY B2
     Dates: start: 20091125

REACTIONS (2)
  - APPENDICITIS [None]
  - HYPERBILIRUBINAEMIA [None]
